FAERS Safety Report 13671795 (Version 1)
Quarter: 2017Q2

REPORT INFORMATION
  Report Type: Spontaneous
  Country: US (occurrence: US)
  Receive Date: 20170620
  Receipt Date: 20170620
  Transmission Date: 20170830
  Serious: Yes (Other)
  Sender: FDA-Public Use
  Company Number: US-BAYER-2017-115186

PATIENT

DRUGS (1)
  1. GADOLINIUM IN UNSPECIFIED DRUG [Suspect]
     Active Substance: GADOLINIUM
     Indication: CEREBRAL DISORDER
     Dosage: 5 MRIS WITH GADOLINIUM OVER SEVERAL YEARS

REACTIONS (6)
  - Skin hypertrophy [Recovering/Resolving]
  - Cerebral disorder [Recovering/Resolving]
  - Gadolinium deposition disease [Recovering/Resolving]
  - Pain [Recovering/Resolving]
  - Muscle spasms [Recovering/Resolving]
  - Hypertension [Recovering/Resolving]
